FAERS Safety Report 8491991-0 (Version None)
Quarter: 2012Q3

REPORT INFORMATION
  Report Type: 
  Country: None (occurrence: None)
  Receive Date: 20120706
  Receipt Date: 20120703
  Transmission Date: 20120928
  Serious: Yes (Hospitalization, Other)
  Sender: FDA-Public Use
  Company Number: PHHY2012AR049508

PATIENT
  Sex: Female

DRUGS (1)
  1. DIOVAN [Suspect]
     Indication: HYPERTENSION
     Dosage: 80 MG, DAILY
     Dates: start: 20120330

REACTIONS (5)
  - BRAIN NEOPLASM [None]
  - LUNG CANCER METASTATIC [None]
  - VISUAL IMPAIRMENT [None]
  - NAUSEA [None]
  - FATIGUE [None]
